FAERS Safety Report 4505185-4 (Version None)
Quarter: 2004Q4

REPORT INFORMATION
  Report Type: 
  Country: None (occurrence: None)
  Receive Date: 20041119
  Receipt Date: 20040629
  Transmission Date: 20050328
  Serious: Yes (Death, Other)
  Sender: FDA-Public Use
  Company Number: PHFR2004GB02615

PATIENT
  Age: 33 Year
  Sex: Male

DRUGS (4)
  1. CLOZARIL [Suspect]
     Indication: SCHIZOPHRENIA
     Dosage: 675 MG/DAY
     Route: 048
     Dates: start: 20010206
  2. HYOSCINE HBR HYT [Concomitant]
     Route: 065
  3. HALOPERIDOL [Concomitant]
     Route: 065
  4. LORAZEPAM [Interacting]
     Route: 065

REACTIONS (10)
  - ABNORMAL BEHAVIOUR [None]
  - DEPRESSED LEVEL OF CONSCIOUSNESS [None]
  - DRUG LEVEL INCREASED [None]
  - DYSPNOEA [None]
  - HALLUCINATION, AUDITORY [None]
  - INAPPROPRIATE AFFECT [None]
  - LOGORRHOEA [None]
  - MASS [None]
  - PSYCHOTIC DISORDER [None]
  - SEDATION [None]
